FAERS Safety Report 13142002 (Version 1)
Quarter: 2017Q1

REPORT INFORMATION
  Report Type: Spontaneous
  Country: CN (occurrence: CN)
  Receive Date: 20170124
  Receipt Date: 20170124
  Transmission Date: 20170428
  Serious: Yes (Other)
  Sender: FDA-Public Use
  Company Number: CN-SA-2017SA011078

PATIENT
  Age: 36 Year
  Sex: Female
  Weight: 55 kg

DRUGS (5)
  1. CARBOPLATIN. [Suspect]
     Active Substance: CARBOPLATIN
     Indication: CERVIX CARCINOMA
     Route: 041
     Dates: start: 20161021, end: 20161021
  2. GLUCOSE INJECTION [Concomitant]
     Route: 041
     Dates: start: 20161021, end: 20161021
  3. TAXOTERE [Suspect]
     Active Substance: DOCETAXEL
     Indication: CERVIX CARCINOMA
     Route: 041
     Dates: start: 20161021, end: 20161021
  4. SODIUM CHLORIDE INJECTION [Concomitant]
     Active Substance: SODIUM CHLORIDE
     Route: 041
     Dates: start: 20161021, end: 20161021
  5. SODIUM CHLORIDE INJECTION [Concomitant]
     Active Substance: SODIUM CHLORIDE
     Route: 041
     Dates: start: 20161021, end: 20161021

REACTIONS (1)
  - Bone marrow failure [Recovering/Resolving]

NARRATIVE: CASE EVENT DATE: 20161025
